FAERS Safety Report 11278767 (Version 6)
Quarter: 2015Q4

REPORT INFORMATION
  Report Type: Report from Study
  Country: AU (occurrence: AU)
  Receive Date: 20150717
  Receipt Date: 20151015
  Transmission Date: 20160304
  Serious: Yes (Hospitalization, Disabling, Other)
  Sender: FDA-Public Use
  Company Number: PHHY2015AU067717

PATIENT
  Age: 43 Year
  Sex: Female
  Weight: 57 kg

DRUGS (23)
  1. OXYCODONE [Concomitant]
     Active Substance: OXYCODONE
     Indication: PAIN
     Dosage: 5 MG, UNK (EVERY 3 HOURS WHEN REQUIRED)
     Route: 048
  2. OMEPRAZOLE. [Concomitant]
     Active Substance: OMEPRAZOLE
     Dosage: 20 MG, UNK (20 MG MANE)
     Route: 048
  3. TIOTROPIUM [Concomitant]
     Active Substance: TIOTROPIUM
     Indication: OBSTRUCTIVE AIRWAYS DISORDER
     Dosage: 18 UG, UNK (MANE)
     Route: 055
  4. CLOZARIL [Suspect]
     Active Substance: CLOZAPINE
     Dosage: 400 MG
     Route: 048
     Dates: start: 20150522
  5. PARACETAMOL [Concomitant]
     Active Substance: ACETAMINOPHEN
     Dosage: 665 MG, BID
     Route: 048
  6. MIRTAZAPINE. [Concomitant]
     Active Substance: MIRTAZAPINE
     Indication: DEPRESSION
     Dosage: 30 MG, QD NOCTE
     Route: 048
  7. SODIUM VALPROATE [Concomitant]
     Active Substance: VALPROATE SODIUM
     Indication: SEIZURE
     Dosage: 200 MG, TID
     Route: 048
     Dates: start: 20150727, end: 20150803
  8. CLOZARIL [Suspect]
     Active Substance: CLOZAPINE
     Dosage: 750 MG
     Route: 048
  9. OXAZEPAM. [Concomitant]
     Active Substance: OXAZEPAM
     Indication: SLEEP DISORDER
     Dosage: 15 MG, QD
     Route: 048
     Dates: start: 20150618, end: 20150714
  10. OMEPRAZOLE. [Concomitant]
     Active Substance: OMEPRAZOLE
     Indication: GASTROOESOPHAGEAL REFLUX DISEASE
     Dosage: 20 MG, NIGHT
     Route: 048
  11. NALOXONE W/OXYCODONE [Concomitant]
     Active Substance: NALOXONE HYDROCHLORIDE\OXYCODONE HYDROCHLORIDE
     Indication: PAIN
     Dosage: UNK UNK, BID (40/20 MG)
     Route: 048
  12. CLOZARIL [Suspect]
     Active Substance: CLOZAPINE
     Indication: SCHIZOPHRENIA
     Dosage: 200 OT, UNK
     Route: 048
     Dates: start: 20030404
  13. CLOZARIL [Suspect]
     Active Substance: CLOZAPINE
     Dosage: 525 MG, QD
     Route: 048
  14. CITALOPRAM [Concomitant]
     Active Substance: CITALOPRAM HYDROBROMIDE
     Indication: DEPRESSION
     Dosage: 20 MG, QD
     Route: 048
  15. COLOXYL WITH SENNA [Concomitant]
     Active Substance: DOCUSATE\SENNOSIDES
     Indication: CONSTIPATION
     Dosage: 2 DF, NIGHT
     Route: 048
     Dates: end: 20150714
  16. VENTOLIN [Concomitant]
     Active Substance: ALBUTEROL SULFATE
     Indication: ASTHMA
     Dosage: 2 DF, PRN
     Route: 055
  17. ELECTROLYTES NOS W/MACROGOL 3350 [Concomitant]
     Indication: CONSTIPATION
     Dosage: 2 DF, BID IN 250 ML WATER
     Route: 048
  18. SALBUTAMOL [Concomitant]
     Active Substance: ALBUTEROL
     Indication: OBSTRUCTIVE AIRWAYS DISORDER
     Dosage: UNK (2 PUFFS WHEN REQUIRED)
     Route: 055
  19. MIRTAZAPINE. [Concomitant]
     Active Substance: MIRTAZAPINE
     Indication: AFFECTIVE DISORDER
  20. PARACETAMOL [Concomitant]
     Active Substance: ACETAMINOPHEN
     Indication: PAIN
     Dosage: 665 MG, QD
     Route: 048
  21. FENTANYL. [Concomitant]
     Active Substance: FENTANYL
     Indication: PAIN
     Dosage: 75 UG/HR, UNK (EVERY 3 DAYS)
     Route: 061
  22. CLOZARIL [Suspect]
     Active Substance: CLOZAPINE
     Dosage: 200 MG, QD
     Route: 048
     Dates: start: 20150725
  23. SPIRIVA [Concomitant]
     Active Substance: TIOTROPIUM BROMIDE MONOHYDRATE
     Indication: ASTHMA
     Dosage: 1 DF, QD
     Route: 055

REACTIONS (54)
  - Pulmonary mass [Unknown]
  - Metastases to lymph nodes [Unknown]
  - Intestinal dilatation [Unknown]
  - Cytomegalovirus infection [Unknown]
  - Blood creatinine decreased [Recovered/Resolved]
  - Blood osmolarity decreased [Unknown]
  - Activated partial thromboplastin time prolonged [Not Recovered/Not Resolved]
  - Gastric dilatation [Unknown]
  - Protein total decreased [Recovered/Resolved]
  - Anal pruritus [Unknown]
  - Lymphocyte count decreased [Not Recovered/Not Resolved]
  - Antipsychotic drug level increased [Recovering/Resolving]
  - Alanine aminotransferase increased [Recovered/Resolved]
  - White blood cell count decreased [Recovered/Resolved]
  - Rectal cancer [Unknown]
  - Epstein-Barr virus infection [Unknown]
  - Blood chloride decreased [Unknown]
  - Blood osmolarity decreased [Recovered/Resolved]
  - Metastases to lung [Unknown]
  - Blood urea decreased [Recovered/Resolved]
  - Oesophagitis [Unknown]
  - Bilirubin conjugated increased [Recovered/Resolved]
  - Aspartate aminotransferase increased [Recovered/Resolved]
  - Anal squamous cell carcinoma [Not Recovered/Not Resolved]
  - Genital neoplasm malignant female [Unknown]
  - Red blood cell count decreased [Recovered/Resolved]
  - Blood chloride decreased [Recovered/Resolved]
  - Haemangioma of bone [Unknown]
  - Faecaloma [Unknown]
  - Large intestinal obstruction [Unknown]
  - Blood sodium decreased [Recovered/Resolved]
  - Blood sodium decreased [Unknown]
  - Blood urea decreased [Recovered/Resolved]
  - Blood fibrinogen increased [Not Recovered/Not Resolved]
  - Blood urea nitrogen/creatinine ratio decreased [Recovered/Resolved]
  - Gastrointestinal stoma complication [Unknown]
  - Lymphadenopathy [Unknown]
  - Red blood cell count decreased [Not Recovered/Not Resolved]
  - Blood sodium decreased [Recovered/Resolved]
  - Globulins decreased [Recovered/Resolved]
  - Gallbladder enlargement [Unknown]
  - Blood urea nitrogen/creatinine ratio decreased [Unknown]
  - Blood albumin decreased [Not Recovered/Not Resolved]
  - Calcinosis [Unknown]
  - Blood creatinine decreased [Recovered/Resolved]
  - Blood phosphorus increased [Recovered/Resolved]
  - Protein total decreased [Recovered/Resolved]
  - Sexually transmitted disease [Unknown]
  - Vulvovaginal pruritus [Unknown]
  - Blood alkaline phosphatase increased [Recovered/Resolved]
  - Blood alkaline phosphatase increased [Not Recovered/Not Resolved]
  - Proctalgia [Unknown]
  - Blood potassium decreased [Recovered/Resolved]
  - Blood bilirubin increased [Recovered/Resolved]

NARRATIVE: CASE EVENT DATE: 20130508
